FAERS Safety Report 18107079 (Version 3)
Quarter: 2023Q4

REPORT INFORMATION
  Report Type: Spontaneous
  Country: US (occurrence: US)
  Receive Date: 20200804
  Receipt Date: 20231019
  Transmission Date: 20240109
  Serious: Yes (Other)
  Sender: FDA-Public Use
  Company Number: US-GILEAD-2020-0486915

PATIENT
  Age: 40 Year
  Sex: Male
  Weight: 142 kg

DRUGS (54)
  1. ATRIPLA [Suspect]
     Active Substance: EFAVIRENZ\EMTRICITABINE\TENOFOVIR DISOPROXIL FUMARATE
     Indication: HIV infection
     Dosage: UNK
     Route: 048
     Dates: start: 20080506, end: 20190609
  2. ATRIPLA [Suspect]
     Active Substance: EFAVIRENZ\EMTRICITABINE\TENOFOVIR DISOPROXIL FUMARATE
     Dosage: UNK
     Route: 048
     Dates: start: 200805
  3. SUSTIVA [Concomitant]
     Active Substance: EFAVIRENZ
  4. AFLURIA NOS [Concomitant]
     Active Substance: INFLUENZA VIRUS VACCINE TRIVALENT TYPE A+B AFLURIA
  5. ALBUTEROL SULFATE [Concomitant]
     Active Substance: ALBUTEROL SULFATE
  6. ALPRAZOLAM [Concomitant]
     Active Substance: ALPRAZOLAM
  7. AMOXICILLIN [Concomitant]
     Active Substance: AMOXICILLIN
  8. AZITHROMYCIN [Concomitant]
     Active Substance: AZITHROMYCIN
  9. OLMESARTAN [Concomitant]
     Active Substance: OLMESARTAN
  10. BENZONATATE [Concomitant]
     Active Substance: BENZONATATE
  11. CEFUROXIME [Concomitant]
     Active Substance: CEFUROXIME
  12. CIPROFLOXACIN [Concomitant]
     Active Substance: CIPROFLOXACIN
  13. CITALOPRAM [Concomitant]
     Active Substance: CITALOPRAM HYDROBROMIDE
  14. CLOBETASOL [Concomitant]
     Active Substance: CLOBETASOL
  15. CYCLOBENZAPRINE [Concomitant]
     Active Substance: CYCLOBENZAPRINE
  16. DESONIDE [Concomitant]
     Active Substance: DESONIDE
  17. DEXAMETHASONE [Concomitant]
     Active Substance: DEXAMETHASONE
  18. DICLOFENAC [Concomitant]
     Active Substance: DICLOFENAC
  19. EFAVIRENZ [Concomitant]
     Active Substance: EFAVIRENZ
  20. ERYTHROMYCIN [Concomitant]
     Active Substance: ERYTHROMYCIN
  21. FLUOCINOLONE [Concomitant]
     Active Substance: FLUOCINOLONE
  22. FLUTICASONE [Concomitant]
     Active Substance: FLUTICASONE
  23. FLUVIRINE [Concomitant]
  24. FLUZONE [Concomitant]
     Active Substance: INFLUENZA A VIRUS A/CALIFORNIA/7/2009 X-179A (H1N1) ANTIGEN (FORMALDEHYDE INACTIVATED)\INFLUENZA A V
  25. GABAPENTIN [Concomitant]
     Active Substance: GABAPENTIN
  26. HYDROCHLOROTHIAZIDE [Concomitant]
     Active Substance: HYDROCHLOROTHIAZIDE
  27. HYDROCODONE [Concomitant]
     Active Substance: HYDROCODONE
  28. XENICAL [Concomitant]
     Active Substance: ORLISTAT
  29. VITAMIN D3 [Concomitant]
     Active Substance: CHOLECALCIFEROL
  30. WELLBUTRIN [Concomitant]
     Active Substance: BUPROPION HYDROCHLORIDE
  31. VALACYCLOVIR HYDROCHLORIDE [Concomitant]
     Active Substance: VALACYCLOVIR HYDROCHLORIDE
  32. VIRTUSSIN AC [Concomitant]
     Active Substance: CODEINE PHOSPHATE\GUAIFENESIN
  33. VITAMIN B12 [Concomitant]
     Active Substance: CYANOCOBALAMIN
  34. VITAMIN D2 [Concomitant]
     Active Substance: ERGOCALCIFEROL
  35. PROMETHAZINE [Concomitant]
     Active Substance: PROMETHAZINE HYDROCHLORIDE
  36. PROVENTIL HFA [Concomitant]
     Active Substance: ALBUTEROL SULFATE
  37. TRAMADOL [Concomitant]
     Active Substance: TRAMADOL\TRAMADOL HYDROCHLORIDE
  38. TRAZODONE [Concomitant]
     Active Substance: TRAZODONE HYDROCHLORIDE
  39. HYDROXYZINE [Concomitant]
     Active Substance: HYDROXYZINE HYDROCHLORIDE
  40. IBUPROFEN [Concomitant]
     Active Substance: IBUPROFEN
  41. KETOCONAZOLE [Concomitant]
     Active Substance: KETOCONAZOLE
  42. LOPERAMIDE [Concomitant]
     Active Substance: LOPERAMIDE
  43. LORAZEPAM [Concomitant]
     Active Substance: LORAZEPAM
  44. LOSARTAN [Concomitant]
     Active Substance: LOSARTAN
  45. MECLIZINE HYDROCHLORIDE [Concomitant]
     Active Substance: MECLIZINE HYDROCHLORIDE
  46. METRONIDAZOLE [Concomitant]
     Active Substance: METRONIDAZOLE
  47. NAPROXEN [Concomitant]
     Active Substance: NAPROXEN
  48. OSELTAMIVIR [Concomitant]
     Active Substance: OSELTAMIVIR
  49. PHENERGAN AND CHLORAL HYDRATE [Concomitant]
  50. PREDNISONE [Concomitant]
     Active Substance: PREDNISONE
  51. PROAIR HFA [Concomitant]
     Active Substance: ALBUTEROL SULFATE
  52. SELZENTRY [Concomitant]
     Active Substance: MARAVIROC
  53. HYDROXYZINE [Concomitant]
     Active Substance: HYDROXYZINE HYDROCHLORIDE
  54. ONDANSETRON [Concomitant]
     Active Substance: ONDANSETRON

REACTIONS (9)
  - Chronic kidney disease [Not Recovered/Not Resolved]
  - Pain [Not Recovered/Not Resolved]
  - Emotional distress [Not Recovered/Not Resolved]
  - Anxiety [Not Recovered/Not Resolved]
  - Anhedonia [Not Recovered/Not Resolved]
  - Loss of personal independence in daily activities [Unknown]
  - Insomnia [Unknown]
  - Bone density decreased [Not Recovered/Not Resolved]
  - Foot fracture [Recovered/Resolved]

NARRATIVE: CASE EVENT DATE: 20090101
